FAERS Safety Report 6114036-6 (Version None)
Quarter: 2009Q1

REPORT INFORMATION
  Report Type: 
  Country: None (occurrence: None)
  Receive Date: 20090312
  Receipt Date: 19951207
  Transmission Date: 20090719
  Serious: No
  Sender: FDA-Public Use
  Company Number: US-ABBOTT-08P-163-0453597-00

PATIENT

DRUGS (3)
  1. DEPAKOTE [Suspect]
     Indication: DRUG USE FOR UNKNOWN INDICATION
  2. CARBAMAZEPINE [Concomitant]
  3. LITHIUM CARBONATE [Concomitant]

REACTIONS (2)
  - DRUG CLEARANCE INCREASED [None]
  - DRUG LEVEL DECREASED [None]
